FAERS Safety Report 15841852 (Version 1)
Quarter: 2018Q4

REPORT INFORMATION
  Report Type: Spontaneous
  Country: US (occurrence: US)
  Receive Date: 20181222
  Receipt Date: 20181222
  Transmission Date: 20190205
  Serious: No
  Sender: FDA-Public Use
  Company Number: None

PATIENT
  Age: 24 Year
  Sex: Female

DRUGS (1)
  1. LUPANETA PACK [Suspect]
     Active Substance: LEUPROLIDE ACETATE\NORETHINDRONE ACETATE
     Dosage: ?          OTHER DOSE:3.75MG/5MG;OTHER FREQUENCY:OTHER;?
     Route: 030
     Dates: start: 201808

REACTIONS (2)
  - Headache [None]
  - Memory impairment [None]

NARRATIVE: CASE EVENT DATE: 20181222
